FAERS Safety Report 5142679-5 (Version None)
Quarter: 2006Q4

REPORT INFORMATION
  Report Type: 
  Country: None (occurrence: None)
  Receive Date: 20061027
  Receipt Date: 20061017
  Transmission Date: 20070319
  Serious: Yes (Hospitalization)
  Sender: FDA-Public Use
  Company Number: US200606001914

PATIENT
  Age: 66 Year
  Sex: Male
  Weight: 95.2 kg

DRUGS (3)
  1. ZYPREXA [Suspect]
     Dosage: SEE IMAGE
     Dates: start: 20030501, end: 20041101
  2. ARIPIPRAZOLE [Concomitant]
  3. VENLAFAXINE [Concomitant]

REACTIONS (4)
  - BLOOD CHOLESTEROL ABNORMAL [None]
  - CORONARY ARTERY BYPASS [None]
  - DIABETES MELLITUS [None]
  - HYPERTENSION [None]
